FAERS Safety Report 5325002-2 (Version None)
Quarter: 2007Q2

REPORT INFORMATION
  Report Type: 
  Country: None (occurrence: None)
  Receive Date: 20070515
  Receipt Date: 20070502
  Transmission Date: 20071010
  Serious: Yes (Other)
  Sender: FDA-Public Use
  Company Number: IE-AMGEN-US217512

PATIENT
  Sex: Female
  Weight: 47.6 kg

DRUGS (3)
  1. ENBREL [Suspect]
     Indication: DRUG USE FOR UNKNOWN INDICATION
     Route: 058
     Dates: start: 20061219
  2. HYDROCORTISONE [Concomitant]
     Indication: DRUG USE FOR UNKNOWN INDICATION
     Dosage: 10 MG AND 5 MG EVERY OTHER DAY
     Route: 065
     Dates: start: 20060901
  3. DIFILIN [Concomitant]
     Dosage: PRN
     Route: 065

REACTIONS (2)
  - CONDITION AGGRAVATED [None]
  - HERPES VIRUS INFECTION [None]
